FAERS Safety Report 15582351 (Version 1)
Quarter: 2018Q4

REPORT INFORMATION
  Report Type: Spontaneous
  Country: US (occurrence: US)
  Receive Date: 20181102
  Receipt Date: 20181102
  Transmission Date: 20190205
  Serious: Yes (Hospitalization)
  Sender: FDA-Public Use
  Company Number: US-BIOMARINAP-US-2018-120556

PATIENT
  Age: 37 Year
  Sex: Female
  Weight: 24.49 kg

DRUGS (1)
  1. VIMIZIM [Suspect]
     Active Substance: ELOSULFASE ALFA
     Indication: MUCOPOLYSACCHARIDOSIS IV
     Dosage: 50 MILLIGRAM, QW
     Route: 042
     Dates: start: 20140730

REACTIONS (5)
  - Pyrexia [Unknown]
  - Abdominal pain upper [Unknown]
  - Dehydration [Unknown]
  - Urinary tract infection [Unknown]
  - Malaise [Unknown]

NARRATIVE: CASE EVENT DATE: 20181023
